FAERS Safety Report 7226237-4 (Version None)
Quarter: 2011Q1

REPORT INFORMATION
  Report Type: 
  Country: None (occurrence: None)
  Receive Date: 20110114
  Receipt Date: 20110104
  Transmission Date: 20110831
  Serious: Yes (Hospitalization)
  Sender: FDA-Public Use
  Company Number: PHHY2011CL00776

PATIENT
  Age: 52 Year
  Sex: Female

DRUGS (1)
  1. LEPONEX [Suspect]
     Indication: SCHIZOPHRENIA
     Dosage: 200 MG, DAILY
     Dates: start: 20101101

REACTIONS (1)
  - GASTRIC BANDING [None]
